FAERS Safety Report 4515942-6 (Version None)
Quarter: 2004Q4

REPORT INFORMATION
  Report Type: 
  Country: None (occurrence: None)
  Receive Date: 20041129
  Receipt Date: 20041119
  Transmission Date: 20050328
  Serious: Yes (Hospitalization)
  Sender: FDA-Public Use
  Company Number: 2004-10-1763

PATIENT
  Age: 45 Year
  Sex: Male
  Weight: 52 kg

DRUGS (3)
  1. CELESTAMINE TAB [Suspect]
     Indication: PRURITUS
     Dosage: 6-2 TABLETS  ORAL
     Route: 048
     Dates: start: 20041007, end: 20041023
  2. CALCIUM CARBONATE [Concomitant]
  3. ROCALTROL [Concomitant]

REACTIONS (6)
  - ACTIVITIES OF DAILY LIVING IMPAIRED [None]
  - CONFUSIONAL STATE [None]
  - HYPERKINESIA [None]
  - PSYCHIATRIC SYMPTOM [None]
  - RESTLESSNESS [None]
  - SHUNT OCCLUSION [None]
